FAERS Safety Report 13076181 (Version 1)
Quarter: 2016Q4

REPORT INFORMATION
  Report Type: Spontaneous
  Country: US (occurrence: US)
  Receive Date: 20161230
  Receipt Date: 20161230
  Transmission Date: 20170207
  Serious: No
  Sender: FDA-Public Use
  Company Number: US-SUPERNUS PHARMACEUTICALS, INC.-2016SUP00163

PATIENT
  Sex: Male

DRUGS (4)
  1. HYDROXYZINE [Concomitant]
     Active Substance: HYDROXYZINE\HYDROXYZINE HYDROCHLORIDE
  2. UNSPECIFIED MEDICATION [Suspect]
     Active Substance: UNSPECIFIED INGREDIENT
  3. OXTELLAR XR [Suspect]
     Active Substance: OXCARBAZEPINE
  4. BRIVIACT [Concomitant]
     Active Substance: BRIVARACETAM

REACTIONS (1)
  - Anxiety disorder [Unknown]

NARRATIVE: CASE EVENT DATE: 201609
